FAERS Safety Report 8891974 (Version 1)
Quarter: 2012Q4

REPORT INFORMATION
  Report Type: 
  Country: US (occurrence: US)
  Receive Date: 20121107
  Receipt Date: 20121107
  Transmission Date: 20130627
  Serious: No
  Sender: FDA-Public Use
  Company Number: US-AMGEN-USASP2011055783

PATIENT
  Age: 66 Year
  Sex: Female

DRUGS (10)
  1. ENBREL [Suspect]
     Indication: PRODUCT USED FOR UNKNOWN INDICATION
     Dosage: 50 mg, qwk
     Route: 058
  2. OMEPRAZOLE [Concomitant]
     Dosage: 10 mg, UNK
  3. VAGIFEM [Concomitant]
     Dosage: 25 mug, UNK
  4. LEVOTHYROXIN [Concomitant]
     Dosage: 25 mug, UNK
  5. BIOTIN [Concomitant]
     Dosage: 10 mg, UNK
  6. GLUCOS [Concomitant]
     Route: 048
  7. VYTORIN [Concomitant]
     Dosage: 10 mg, UNK
  8. DICLOFENAC [Concomitant]
     Dosage: 25 mg, UNK
  9. MULTIVITAMIN                       /00097801/ [Concomitant]
     Dosage: UNK
     Route: 048
  10. B VITAMIN COMP                     /00003501/ [Concomitant]
     Dosage: UNK
     Route: 048

REACTIONS (1)
  - Paraesthesia [Unknown]
